FAERS Safety Report 4630741-2 (Version None)
Quarter: 2005Q2

REPORT INFORMATION
  Report Type: 
  Country: None (occurrence: None)
  Receive Date: 20050408
  Receipt Date: 20050323
  Transmission Date: 20051028
  Serious: Yes (Hospitalization)
  Sender: FDA-Public Use
  Company Number: BR-JNJFOC-20050401616

PATIENT
  Age: 19 Year
  Sex: Female
  Weight: 50 kg

DRUGS (1)
  1. TYLEX [Suspect]

REACTIONS (4)
  - DIZZINESS [None]
  - NEPHROLITHIASIS [None]
  - TREMOR [None]
  - VOMITING [None]
